FAERS Safety Report 4755131-3 (Version None)
Quarter: 2005Q3

REPORT INFORMATION
  Report Type: 
  Country: None (occurrence: None)
  Receive Date: 20050829
  Receipt Date: 20040816
  Transmission Date: 20060218
  Serious: Yes (Other)
  Sender: FDA-Public Use
  Company Number: 2004UW17565

PATIENT
  Age: 81 Year
  Sex: Female
  Weight: 58.5 kg

DRUGS (6)
  1. RHINOCORT [Suspect]
     Indication: SINUS DISORDER
     Dosage: ONE SPRAY EACH NOSTRIL
     Route: 045
     Dates: start: 20040101
  2. RHINOCORT [Suspect]
     Indication: RHINITIS
     Dosage: ONE SPRAY EACH NOSTRIL
     Route: 045
     Dates: start: 20040101
  3. RHINOCORT [Suspect]
     Route: 045
     Dates: start: 20010501, end: 20040101
  4. RHINOCORT [Suspect]
     Route: 045
     Dates: start: 20010501, end: 20040101
  5. BION DROPS [Concomitant]
  6. VITAMINS [Concomitant]

REACTIONS (8)
  - DRY EYE [None]
  - EYE INFLAMMATION [None]
  - EYE PAIN [None]
  - FALL [None]
  - HEADACHE [None]
  - MACULAR DEGENERATION [None]
  - OCULAR HYPERAEMIA [None]
  - PAIN [None]
